FAERS Safety Report 15857338 (Version 2)
Quarter: 2019Q3

REPORT INFORMATION
  Report Type: Spontaneous
  Country: US (occurrence: US)
  Receive Date: 20190123
  Receipt Date: 20190812
  Transmission Date: 20191004
  Serious: No
  Sender: FDA-Public Use
  Company Number: US-MYLANLABS-2019M1000235

PATIENT
  Sex: Female

DRUGS (1)
  1. ESTRADIOL TRANSDERMAL SYSTEM [Suspect]
     Active Substance: ESTRADIOL
     Indication: HOT FLUSH
     Dosage: UNK
     Route: 062

REACTIONS (8)
  - Wrong technique in product usage process [Unknown]
  - Blood oestrogen abnormal [Not Recovered/Not Resolved]
  - Hot flush [Unknown]
  - Crying [Not Recovered/Not Resolved]
  - Product quality issue [Unknown]
  - Mood altered [Not Recovered/Not Resolved]
  - Emotional disorder [Not Recovered/Not Resolved]
  - Product adhesion issue [Unknown]
